FAERS Safety Report 7705196-1 (Version None)
Quarter: 2011Q3

REPORT INFORMATION
  Report Type: 
  Country: None (occurrence: None)
  Receive Date: 20110824
  Receipt Date: 20110815
  Transmission Date: 20111222
  Serious: Yes (Other)
  Sender: FDA-Public Use
  Company Number: MY-SHIRE-ALL1-2011-02801

PATIENT
  Sex: Male
  Weight: 22.2 kg

DRUGS (1)
  1. ELAPRASE [Suspect]
     Indication: MUCOPOLYSACCHARIDOSIS II
     Dosage: 12 MG (INFUSION OVER FOUR HOURS), UNKNOWN
     Route: 041
     Dates: start: 20110509, end: 20110808

REACTIONS (6)
  - URTICARIA [None]
  - RASH PRURITIC [None]
  - PRURITUS [None]
  - BLOOD PRESSURE DECREASED [None]
  - INFUSION RELATED REACTION [None]
  - RESTLESSNESS [None]
